FAERS Safety Report 6997373-2 (Version None)
Quarter: 2010Q3

REPORT INFORMATION
  Report Type: 
  Country: None (occurrence: None)
  Receive Date: 20100918
  Receipt Date: 20091008
  Transmission Date: 20110219
  Serious: No
  Sender: FDA-Public Use
  Company Number: US-WYE-H11500209

PATIENT
  Age: 78 Year
  Sex: Female

DRUGS (5)
  1. EFFEXOR XR [Suspect]
     Indication: DEPRESSION
     Route: 048
     Dates: start: 20050101
  2. EFFEXOR XR [Suspect]
     Indication: BIPOLAR I DISORDER
     Route: 048
  3. EFFEXOR XR [Suspect]
     Route: 048
  4. LORAZEPAM [Concomitant]
  5. BUPROPION HCL [Concomitant]

REACTIONS (3)
  - BLOOD PRESSURE INCREASED [None]
  - DRUG WITHDRAWAL SYNDROME [None]
  - PANIC ATTACK [None]
